FAERS Safety Report 6584760-X (Version None)
Quarter: 2010Q1

REPORT INFORMATION
  Report Type: 
  Country: None (occurrence: None)
  Receive Date: 20100217
  Receipt Date: 20100205
  Transmission Date: 20100710
  Serious: Yes (Other)
  Sender: FDA-Public Use
  Company Number: US-ELI_LILLY_AND_COMPANY-US200911001209

PATIENT
  Sex: Female

DRUGS (6)
  1. FORTEO [Suspect]
     Indication: OSTEOPOROSIS
     Dosage: 20 UG, DAILY (1/D)
     Dates: start: 20090801
  2. CITALOPRAM HYDROBROMIDE [Concomitant]
     Dosage: 40 MG, DAILY (1/D)
  3. ALPRAZOLAM [Concomitant]
     Dosage: 0.5 MG, 2/D
  4. ALPRAZOLAM [Concomitant]
     Dosage: 0.5 MG, 3/D
  5. CLONAZEPAM [Concomitant]
     Dosage: 1 MG, DAILY (1/D)
  6. TYLENOL (CAPLET) [Concomitant]
     Dosage: UNK, AS NEEDED

REACTIONS (4)
  - BACK PAIN [None]
  - LUNG DISORDER [None]
  - LUNG NEOPLASM MALIGNANT [None]
  - NERVOUSNESS [None]
